FAERS Safety Report 7934515-6 (Version None)
Quarter: 2011Q4

REPORT INFORMATION
  Report Type: 
  Country: None (occurrence: None)
  Receive Date: 20111122
  Receipt Date: 20111111
  Transmission Date: 20120403
  Serious: Yes (Hospitalization)
  Sender: FDA-Public Use
  Company Number: US-JNJFOC-20111105320

PATIENT
  Age: 59 Year
  Sex: Female
  Weight: 90.72 kg

DRUGS (3)
  1. EXTRA STRENGTH TYLENOL PM [Suspect]
     Indication: ARTHRALGIA
     Dosage: 2-3 CAPLETS DAILY EVERY 4-5 HOURS AROUND THE CLOCK FOR 5 YEARS.
     Route: 048
     Dates: start: 20060101, end: 20110901
  2. LORTAB [Suspect]
     Indication: ARTHRITIS
     Dosage: 500/10 MG ONCE AS NECESSARY, UP TO 4 A DAY
     Dates: start: 20100101
  3. XANAX [Concomitant]
     Indication: MULTIPLE CHEMICAL SENSITIVITY
     Dosage: PRN

REACTIONS (9)
  - PNEUMONIA [None]
  - AMNESIA [None]
  - DRUG ADMINISTRATION ERROR [None]
  - OVERDOSE [None]
  - RENAL FAILURE [None]
  - DEPENDENCE [None]
  - GASTROINTESTINAL INFECTION [None]
  - CYSTITIS [None]
  - SKIN DISCOLOURATION [None]
